FAERS Safety Report 14312925 (Version 2)
Quarter: 2018Q2

REPORT INFORMATION
  Report Type: Spontaneous
  Country: FR (occurrence: FR)
  Receive Date: 20171221
  Receipt Date: 20180607
  Transmission Date: 20180711
  Serious: Yes (Hospitalization, Other)
  Sender: FDA-Public Use
  Company Number: PHHY2017FR190530

PATIENT
  Age: 62 Year
  Sex: Male

DRUGS (1)
  1. TACROLIMUS. [Suspect]
     Active Substance: TACROLIMUS
     Indication: RENAL TRANSPLANT
     Dosage: 3 MG, QD
     Route: 048
     Dates: start: 20131008, end: 20151020

REACTIONS (3)
  - Basal cell carcinoma [Recovered/Resolved with Sequelae]
  - Squamous cell carcinoma [Recovered/Resolved]
  - Bowen^s disease [Recovered/Resolved]

NARRATIVE: CASE EVENT DATE: 20151022
